FAERS Safety Report 12350083 (Version 2)
Quarter: 2016Q2

REPORT INFORMATION
  Report Type: Spontaneous
  Country: US (occurrence: US)
  Receive Date: 20160510
  Receipt Date: 20160624
  Transmission Date: 20160815
  Serious: No
  Sender: FDA-Public Use
  Company Number: US-BRISTOL-MYERS SQUIBB COMPANY-BMS-2016-034037

PATIENT

DRUGS (1)
  1. ELIQUIS [Suspect]
     Active Substance: APIXABAN
     Indication: PERIPHERAL VASCULAR DISORDER
     Dosage: 5 MG, BID
     Route: 048

REACTIONS (5)
  - Pain in extremity [Unknown]
  - Dyspnoea [Unknown]
  - Product use issue [Unknown]
  - Peripheral swelling [Unknown]
  - Weight increased [Unknown]
